FAERS Safety Report 18156024 (Version 2)
Quarter: 2020Q3

REPORT INFORMATION
  Report Type: Spontaneous
  Country: US (occurrence: US)
  Receive Date: 20200817
  Receipt Date: 20200819
  Transmission Date: 20201103
  Serious: Yes (Other)
  Sender: FDA-Public Use
  Company Number: US-PFIZER INC-2020314494

PATIENT
  Age: 27 Year
  Sex: Female

DRUGS (1)
  1. EPINEPHRINE. [Suspect]
     Active Substance: EPINEPHRINE
     Dosage: UNK (LARGE DOSE) 5 CC OF 1:1000
     Route: 058

REACTIONS (9)
  - Pulmonary oedema [Recovering/Resolving]
  - Chest discomfort [Unknown]
  - Headache [Unknown]
  - Maternal exposure during pregnancy [Unknown]
  - Hypertension [Recovering/Resolving]
  - Hypotension [Recovering/Resolving]
  - Accidental overdose [Unknown]
  - Cardiomyopathy [Recovering/Resolving]
  - Dyspnoea [Unknown]
